FAERS Safety Report 8316861-X (Version None)
Quarter: 2012Q2

REPORT INFORMATION
  Report Type: 
  Country: None (occurrence: None)
  Receive Date: 20120427
  Receipt Date: 20120419
  Transmission Date: 20120825
  Serious: Yes (Hospitalization)
  Sender: FDA-Public Use
  Company Number: PHHY2012TW034142

PATIENT
  Sex: Female

DRUGS (1)
  1. AMLODIPINE [Suspect]
     Indication: HYPERTENSION
     Dosage: 1 DF (80 MG VALS AND 5 MG AMLO), DAILY
     Route: 048
     Dates: start: 20120224

REACTIONS (7)
  - HAEMOGLOBIN DECREASED [None]
  - GASTRIC VARICES HAEMORRHAGE [None]
  - BLOOD CREATINE PHOSPHOKINASE INCREASED [None]
  - GASTRIC ULCER [None]
  - OEDEMA PERIPHERAL [None]
  - OESOPHAGEAL VARICES HAEMORRHAGE [None]
  - GAIT DISTURBANCE [None]
